FAERS Safety Report 13454642 (Version 1)
Quarter: 2017Q2

REPORT INFORMATION
  Report Type: Spontaneous
  Country: US (occurrence: US)
  Receive Date: 20170418
  Receipt Date: 20170418
  Transmission Date: 20170830
  Serious: Yes (Other)
  Sender: FDA-Public Use
  Company Number: None

PATIENT
  Age: 73 Year
  Sex: Female
  Weight: 91.7 kg

DRUGS (1)
  1. LENALIDOMIDE 15MG PO [Suspect]
     Active Substance: LENALIDOMIDE
     Indication: B-CELL LYMPHOMA
     Dosage: DAYS 1-21
     Route: 048
     Dates: start: 20170323, end: 20170416

REACTIONS (2)
  - Neutropenia [None]
  - Therapy change [None]

NARRATIVE: CASE EVENT DATE: 20170417
